FAERS Safety Report 8458582-9 (Version None)
Quarter: 2012Q2

REPORT INFORMATION
  Report Type: 
  Country: None (occurrence: None)
  Receive Date: 20120622
  Receipt Date: 20120615
  Transmission Date: 20120825
  Serious: Yes (Other)
  Sender: FDA-Public Use
  Company Number: US-JNJFOC-20120312321

PATIENT
  Sex: Female

DRUGS (2)
  1. LEVAQUIN [Suspect]
     Indication: URINARY TRACT INFECTION
     Route: 048
     Dates: start: 20080501
  2. RIFAMPIN [Suspect]
     Indication: PRODUCT USED FOR UNKNOWN INDICATION
     Route: 065

REACTIONS (9)
  - ROTATOR CUFF SYNDROME [None]
  - MUSCLE SPASMS [None]
  - EYE IRRITATION [None]
  - VISUAL IMPAIRMENT [None]
  - VULVOVAGINAL BURNING SENSATION [None]
  - SLEEP DISORDER [None]
  - EYE PAIN [None]
  - BLISTER [None]
  - URINE OUTPUT INCREASED [None]
